FAERS Safety Report 4344341-5 (Version None)
Quarter: 2004Q2

REPORT INFORMATION
  Report Type: 
  Country: None (occurrence: None)
  Receive Date: 20040419
  Receipt Date: 20040311
  Transmission Date: 20050107
  Serious: Yes (Hospitalization)
  Sender: FDA-Public Use
  Company Number: A-CH2004-05388

PATIENT
  Age: 18 Month
  Sex: Male
  Weight: 10 kg

DRUGS (1)
  1. TRACLEER [Suspect]
     Indication: PULMONARY HYPERTENSION
     Dosage: 15.625 MG, BID, ORAL
     Route: 048
     Dates: start: 20030823

REACTIONS (1)
  - PULMONARY HYPERTENSION [None]
